FAERS Safety Report 10260882 (Version 1)
Quarter: 2014Q2

REPORT INFORMATION
  Report Type: Report from Study
  Country: IN (occurrence: IN)
  Receive Date: 20140626
  Receipt Date: 20140626
  Transmission Date: 20141212
  Serious: Yes (Other)
  Sender: FDA-Public Use
  Company Number: PHHY2014IN077694

PATIENT
  Age: 33 Year
  Sex: Female

DRUGS (12)
  1. LETROZOLE [Suspect]
     Indication: BREAST CANCER METASTATIC
     Dosage: 2.5 MG, PER DAY
     Route: 048
     Dates: start: 20130218
  2. LAPATINIB [Suspect]
     Indication: BREAST CANCER METASTATIC
     Dosage: 1000 MG, DAILY
     Route: 048
     Dates: start: 20130218
  3. TRASTUZUMAB [Suspect]
     Indication: BREAST CANCER METASTATIC
     Dosage: 8 MG/KG, AS LOADING DOSE
     Route: 042
     Dates: start: 20130218
  4. TRASTUZUMAB [Suspect]
     Dosage: 6 MG/KG, EVERY 3 WEEKS
  5. RAMIPRIL [Concomitant]
     Dosage: UNK UKN, UNK
     Dates: start: 20130620
  6. METOPROLOL [Concomitant]
     Dosage: UNK UKN, UNK
     Dates: start: 20130703
  7. ASCORBIC ACID W/FOLIC ACID/VITAMIN B NOS [Concomitant]
     Dosage: UNK UKN, UNK
     Dates: start: 20130218
  8. FOLIC ACID [Concomitant]
     Dosage: UNK UKN, UNK
     Dates: start: 20130218
  9. PANTOPRAZOLE [Concomitant]
     Dosage: UNK UKN, UNK
     Dates: start: 20130218
  10. OSTEOCAL [Concomitant]
     Dosage: UNK UKN, UNK
     Dates: start: 20100101
  11. CINCHOCAINE [Concomitant]
     Dosage: UNK UKN, UNK
     Dates: start: 20130218
  12. HYDROCORTISONE [Concomitant]
     Dosage: UNK UKN, UNK
     Dates: start: 20140218

REACTIONS (2)
  - Cardiac disorder [Recovered/Resolved with Sequelae]
  - Ejection fraction decreased [Recovered/Resolved with Sequelae]
